FAERS Safety Report 7461841-X (Version None)
Quarter: 2011Q2

REPORT INFORMATION
  Report Type: 
  Country: None (occurrence: None)
  Receive Date: 20110506
  Receipt Date: 20110502
  Transmission Date: 20111010
  Serious: Yes (Hospitalization, Other)
  Sender: FDA-Public Use
  Company Number: US-PFIZER INC-2011023028

PATIENT
  Sex: Male

DRUGS (7)
  1. GLUCOPHAGE [Concomitant]
     Indication: DIABETES MELLITUS
     Dosage: UNK
     Dates: start: 19980101, end: 20080101
  2. HALFLYTELY [Concomitant]
     Indication: COLONOSCOPY
     Dosage: UNK
     Dates: start: 20060101, end: 20090101
  3. GLUCOTROL [Concomitant]
     Indication: DIABETES MELLITUS
     Dosage: UNK
     Dates: start: 19980101
  4. ZESTRIL [Concomitant]
     Indication: HYPERTENSION
     Dosage: UNK
     Dates: start: 20030101
  5. TOPROL-XL [Concomitant]
     Indication: HYPERTENSION
     Dosage: UNK
     Dates: start: 20050101
  6. CHANTIX [Suspect]
     Indication: SMOKING CESSATION THERAPY
     Dosage: STARTING AND CONTINUING MONTH PACK
     Dates: start: 20071120, end: 20071225
  7. LIPITOR [Concomitant]
     Indication: BLOOD CHOLESTEROL INCREASED
     Dosage: UNK
     Dates: start: 20050101

REACTIONS (6)
  - ANXIETY [None]
  - SUICIDAL IDEATION [None]
  - PSYCHOTIC DISORDER [None]
  - HEADACHE [None]
  - HOMICIDAL IDEATION [None]
  - DEPRESSION [None]
